FAERS Safety Report 6258945-6 (Version None)
Quarter: 2009Q3

REPORT INFORMATION
  Report Type: 
  Country: None (occurrence: None)
  Receive Date: 20090707
  Receipt Date: 20090624
  Transmission Date: 20100115
  Serious: Yes (Life-Threatening, Hospitalization)
  Sender: FDA-Public Use
  Company Number: ES-GENENTECH-285954

PATIENT
  Sex: Female

DRUGS (1)
  1. HERCEPTIN [Suspect]
     Indication: BREAST CANCER
     Dosage: 134 UNK, 1/WEEK
     Route: 042
     Dates: start: 20090205, end: 20090227

REACTIONS (2)
  - MYOCARDITIS [None]
  - SEPTIC SHOCK [None]
